FAERS Safety Report 25525025 (Version 1)
Quarter: 2025Q3

REPORT INFORMATION
  Report Type: Spontaneous
  Country: US (occurrence: None)
  Receive Date: 20250707
  Receipt Date: 20250707
  Transmission Date: 20251021
  Serious: Yes (Other)
  Sender: FDA-CTU
  Company Number: None

PATIENT
  Age: 52 Year
  Sex: Female

DRUGS (1)
  1. TASIGNA [Suspect]
     Active Substance: NILOTINIB
     Dosage: FREQUENCY : TWICE A DAY;?

REACTIONS (4)
  - Blood cholesterol increased [None]
  - Weight increased [None]
  - Blood urine present [None]
  - Gastrointestinal pain [None]
